FAERS Safety Report 8891670 (Version 1)
Quarter: 2012Q4

REPORT INFORMATION
  Report Type: 
  Country: US (occurrence: US)
  Receive Date: 20121107
  Receipt Date: 20121107
  Transmission Date: 20130627
  Serious: No
  Sender: FDA-Public Use
  Company Number: US-AMGEN-USASP2011056125

PATIENT
  Sex: Male

DRUGS (15)
  1. ENBREL [Suspect]
     Indication: PRODUCT USED FOR UNKNOWN INDICATION
     Dosage: 50 mg, qwk
  2. PREDNISONE [Concomitant]
     Dosage: 1 mg, UNK
  3. ARAVA [Concomitant]
     Dosage: 10 mg, UNK
  4. LEFLUNOMIDE [Concomitant]
     Dosage: 10 mg, UNK
  5. FOLIC ACID [Concomitant]
     Dosage: 1 mg, UNK
  6. FAMOTIDINE [Concomitant]
     Dosage: 10 mg, UNK
  7. METOPROLOL [Concomitant]
     Dosage: 25 mg, UNK
  8. AMITRIPTYLIN [Concomitant]
     Dosage: 25 mg, UNK
  9. CRESTOR [Concomitant]
     Dosage: 20 mg, UNK
  10. MIRAPEX [Concomitant]
     Dosage: 0.75 mg, UNK
  11. VITAMIN C [Concomitant]
     Dosage: 500 mg, UNK
  12. NIACIN [Concomitant]
     Dosage: 125 mg, UNK
  13. CALCIUM + VIT D [Concomitant]
  14. VITAMIN D [Concomitant]
     Dosage: 400 IU, UNK
  15. BABY ASPIRIN [Concomitant]
     Dosage: 81 mg, UNK

REACTIONS (1)
  - Rheumatoid arthritis [Unknown]
